FAERS Safety Report 7404137-4 (Version None)
Quarter: 2011Q1

REPORT INFORMATION
  Report Type: 
  Country: None (occurrence: None)
  Receive Date: 20110331
  Receipt Date: 20110318
  Transmission Date: 20110831
  Serious: Yes (Hospitalization)
  Sender: FDA-Public Use
  Company Number: FR-SEPTODONT-201100050

PATIENT
  Age: 37 Year
  Sex: Male

DRUGS (2)
  1. (ALUMINIUM CHLOROHYDRATE) [Concomitant]
  2. SEPTANEST 40 MG/ML ADRENALINEE (ARTICAINE HCL WITH EPINEPHRINE 1:200,0 [Suspect]
     Indication: LOCAL ANAESTHESIA
     Dosage: DENTAL INJECTION
     Dates: start: 20110121

REACTIONS (3)
  - ANGIOEDEMA [None]
  - URTICARIA [None]
  - SWELLING FACE [None]
